FAERS Safety Report 9360453 (Version 1)
Quarter: 2013Q2

REPORT INFORMATION
  Report Type: Spontaneous
  Country: US (occurrence: None)
  Receive Date: 20130620
  Receipt Date: 20130620
  Transmission Date: 20140414
  Serious: Yes (Other)
  Sender: FDA-Public Use
  Company Number: None

PATIENT
  Sex: Male

DRUGS (2)
  1. RIBAVIRIN [Suspect]
     Indication: HEPATITIS C
     Route: 048
     Dates: start: 201211
  2. PEGASYS 180MCG/0.5ML GENENTECH [Suspect]
     Indication: HEPATITIS C
     Route: 058
     Dates: start: 201211

REACTIONS (2)
  - Tongue ulceration [None]
  - Stomatitis [None]
